FAERS Safety Report 7767993-6 (Version None)
Quarter: 2011Q3

REPORT INFORMATION
  Report Type: 
  Country: None (occurrence: None)
  Receive Date: 20110922
  Receipt Date: 20110712
  Transmission Date: 20111222
  Serious: No
  Sender: FDA-Public Use
  Company Number: US-ASTRAZENECA-2010SE00267

PATIENT
  Age: 63 Year
  Sex: Male

DRUGS (3)
  1. SEROQUEL [Suspect]
     Route: 048
  2. LEXAPRO [Concomitant]
  3. SEROQUEL [Suspect]
     Indication: DEPRESSION
     Route: 048

REACTIONS (9)
  - HYPERSOMNIA [None]
  - JOINT INJURY [None]
  - DIPLOPIA [None]
  - SOMNOLENCE [None]
  - DIZZINESS [None]
  - DRUG DOSE OMISSION [None]
  - EAR PAIN [None]
  - FALL [None]
  - JOINT HYPEREXTENSION [None]
